FAERS Safety Report 15997935 (Version 1)
Quarter: 2019Q1

REPORT INFORMATION
  Report Type: Spontaneous
  Country: DE (occurrence: DE)
  Receive Date: 20190222
  Receipt Date: 20190222
  Transmission Date: 20190418
  Serious: Yes (Hospitalization, Other)
  Sender: FDA-Public Use
  Company Number: DE-ARBOR PHARMACEUTICALS, LLC-DE-2019ARB000130

PATIENT
  Age: 80 Year
  Sex: Male

DRUGS (3)
  1. PROFACT [Concomitant]
     Active Substance: BUSERELIN ACETATE
     Indication: PRODUCT USED FOR UNKNOWN INDICATION
     Dosage: NOW AND THEN THERAPY INTERRUPTION
  2. BICALUTAMIDE. [Concomitant]
     Active Substance: BICALUTAMIDE
     Indication: PRODUCT USED FOR UNKNOWN INDICATION
     Dosage: INTERMITTENT THERAPY
  3. TRIPTODUR [Suspect]
     Active Substance: TRIPTORELIN
     Indication: PROSTATE CANCER
     Dosage: 11.25 MG, UNK
     Route: 065
     Dates: start: 20180224

REACTIONS (3)
  - Hypertensive crisis [Recovered/Resolved]
  - Hypertensive crisis [Unknown]
  - Hypertonia [Unknown]

NARRATIVE: CASE EVENT DATE: 201806
